FAERS Safety Report 4487640-9 (Version None)
Quarter: 2004Q4

REPORT INFORMATION
  Report Type: 
  Country: None (occurrence: None)
  Receive Date: 20041025
  Receipt Date: 20041013
  Transmission Date: 20050328
  Serious: Yes (Death, Hospitalization, Other)
  Sender: FDA-Public Use
  Company Number: 001-0981-M0000770

PATIENT
  Age: 76 Year
  Sex: Male
  Weight: 87.9978 kg

DRUGS (7)
  1. ATORVASTATIN (ATORVASTATIN) [Suspect]
     Indication: CORONARY ARTERY DISEASE
     Dosage: 10 MG (1 IN 1 D), ORAL  : 10 OR 80 MG (1 IN 1 D), ORAL
     Route: 048
     Dates: start: 19990120, end: 19990317
  2. ATORVASTATIN (ATORVASTATIN) [Suspect]
     Indication: CORONARY ARTERY DISEASE
     Dosage: 10 MG (1 IN 1 D), ORAL  : 10 OR 80 MG (1 IN 1 D), ORAL
     Route: 048
     Dates: start: 19990318, end: 20000114
  3. LEVOTHYROXINE SODIUM [Concomitant]
  4. TRIAMTERENE [Concomitant]
  5. MULTIVITAMINS(ASCORBIC ACID,ERGOCALCIFEROL,FOLIC ACID,NICOTINAMIDE,PAN [Concomitant]
  6. ACETYLSALICYLIC ACID [Concomitant]
  7. TOCOPHEROL CONCENTRATE CAP [Concomitant]

REACTIONS (10)
  - CARDIO-RESPIRATORY ARREST [None]
  - DYSPNOEA [None]
  - HYPERHIDROSIS [None]
  - INCISIONAL HERNIA [None]
  - MALIGNANT PLEURAL EFFUSION [None]
  - METASTASES TO LIVER [None]
  - METASTATIC NEOPLASM [None]
  - PULMONARY CALCIFICATION [None]
  - PULMONARY GRANULOMA [None]
  - RENAL CYST [None]
